FAERS Safety Report 6911783-0 (Version None)
Quarter: 2010Q3

REPORT INFORMATION
  Report Type: 
  Country: None (occurrence: None)
  Receive Date: 20100806
  Receipt Date: 20070720
  Transmission Date: 20110219
  Serious: Yes (Other)
  Sender: FDA-Public Use
  Company Number: US-PFIZER INC-2007060967

PATIENT
  Sex: Female

DRUGS (3)
  1. GEMFIBROZIL [Suspect]
  2. GEMFIBROZIL [Suspect]
  3. ALL OTHER THERAPEUTIC PRODUCTS [Concomitant]

REACTIONS (3)
  - COLITIS [None]
  - ERUCTATION [None]
  - NAUSEA [None]
